FAERS Safety Report 7197648-0 (Version None)
Quarter: 2010Q4

REPORT INFORMATION
  Report Type: 
  Country: None (occurrence: None)
  Receive Date: 20101213
  Receipt Date: 20101126
  Transmission Date: 20110411
  Serious: Yes (Hospitalization)
  Sender: FDA-Public Use
  Company Number: IPC201011-000312

PATIENT
  Age: 27 Year
  Sex: Female

DRUGS (1)
  1. METFORMIN HCL [Suspect]
     Indication: POLYCYSTIC OVARIES
     Dosage: 20 G 2 HOURS EARLIER TO ADMISSION

REACTIONS (9)
  - ABDOMINAL PAIN [None]
  - CONDITION AGGRAVATED [None]
  - CONFUSIONAL STATE [None]
  - HAEMODIALYSIS [None]
  - HYPOTENSION [None]
  - INTENTIONAL OVERDOSE [None]
  - LACTIC ACIDOSIS [None]
  - PELVIC PAIN [None]
  - THERAPEUTIC RESPONSE DECREASED [None]
